FAERS Safety Report 5603684-5 (Version None)
Quarter: 2008Q1

REPORT INFORMATION
  Report Type: 
  Country: None (occurrence: None)
  Receive Date: 20080123
  Receipt Date: 20080107
  Transmission Date: 20080703
  Serious: Yes (Other)
  Sender: FDA-Public Use
  Company Number: 2008MB000002

PATIENT
  Sex: Female

DRUGS (3)
  1. KEFLEX [Suspect]
     Indication: CELLULITIS
     Dosage: 1000 MG;QD;PO
     Route: 048
     Dates: start: 19910101, end: 19910101
  2. DEMEROL [Concomitant]
  3. UNSPECIFIED SLEEPING PILL [Concomitant]

REACTIONS (6)
  - ARTHRALGIA [None]
  - CONNECTIVE TISSUE DISORDER [None]
  - HEPATIC CIRRHOSIS [None]
  - HEPATITIS B [None]
  - JOINT SWELLING [None]
  - SYSTEMIC LUPUS ERYTHEMATOSUS [None]
